FAERS Safety Report 16969916 (Version 2)
Quarter: 2019Q4

REPORT INFORMATION
  Report Type: Spontaneous
  Country: US (occurrence: US)
  Receive Date: 20191029
  Receipt Date: 20191118
  Transmission Date: 20200122
  Serious: Yes (Other)
  Sender: FDA-Public Use
  Company Number: US-SUNOVION-2019SUN004558

PATIENT
  Age: 60 Year
  Sex: Female

DRUGS (1)
  1. LONHALA MAGNAIR [Suspect]
     Active Substance: GLYCOPYRROLATE
     Dosage: 25 ?G, BID (60/ 30)
     Route: 055

REACTIONS (6)
  - Tooth extraction [Unknown]
  - Lung disorder [Unknown]
  - Cough [Unknown]
  - Underdose [Unknown]
  - Lung neoplasm malignant [Unknown]
  - Malaise [Unknown]
